FAERS Safety Report 9502940 (Version 1)
Quarter: 2013Q3

REPORT INFORMATION
  Report Type: Spontaneous
  Country: US (occurrence: US)
  Receive Date: 20130906
  Receipt Date: 20130906
  Transmission Date: 20140515
  Serious: Yes (Other)
  Sender: FDA-Public Use
  Company Number: PHEH2013US018549

PATIENT
  Sex: Male

DRUGS (1)
  1. TEGRETOL [Suspect]
     Dosage: UNK UKN, UNK

REACTIONS (4)
  - Cerebrovascular accident [Unknown]
  - Fluid retention [Unknown]
  - Blood pressure fluctuation [Recovered/Resolved]
  - Blood sodium abnormal [Unknown]
